FAERS Safety Report 4703121-9 (Version None)
Quarter: 2005Q2

REPORT INFORMATION
  Report Type: 
  Country: None (occurrence: None)
  Receive Date: 20050629
  Receipt Date: 20050627
  Transmission Date: 20051028
  Serious: Yes (Hospitalization)
  Sender: FDA-Public Use
  Company Number: US-GLAXOSMITHKLINE-A0564308A

PATIENT
  Age: 59 Year
  Sex: Male

DRUGS (21)
  1. ADVAIR [Suspect]
     Indication: CHRONIC OBSTRUCTIVE PULMONARY DISEASE
     Dosage: 1PUFF TWICE PER DAY
     Route: 055
     Dates: start: 20050301
  2. SPIRIVA [Concomitant]
  3. PROTONIX [Concomitant]
  4. LOPRESSOR [Concomitant]
  5. PROVENTIL-HFA [Concomitant]
  6. AMBIEN [Concomitant]
  7. FLONASE [Concomitant]
  8. ALBUTEROL [Concomitant]
  9. PLAVIX [Concomitant]
  10. PRAVACHOL [Concomitant]
  11. MAVIK [Concomitant]
  12. NITROSTAT [Concomitant]
  13. ASPIRIN [Concomitant]
  14. FISH OIL [Concomitant]
  15. MULTIVITAMIN [Concomitant]
  16. COQ10 [Concomitant]
  17. MUCINEX [Concomitant]
  18. METAMUCIL [Concomitant]
  19. PAPAYA ENZYME [Concomitant]
  20. NIACIN [Concomitant]
  21. VIT C [Concomitant]

REACTIONS (2)
  - CORONARY ARTERIAL STENT INSERTION [None]
  - MYOCARDIAL INFARCTION [None]
